FAERS Safety Report 7532973-2 (Version None)
Quarter: 2011Q2

REPORT INFORMATION
  Report Type: 
  Country: None (occurrence: None)
  Receive Date: 20110601
  Receipt Date: 20110523
  Transmission Date: 20111010
  Serious: Yes (Other)
  Sender: FDA-Public Use
  Company Number: 2011SP015961

PATIENT
  Age: 50 Year
  Sex: Female
  Weight: 60 kg

DRUGS (3)
  1. IMPLANON [Suspect]
     Indication: CONTRACEPTION
     Dosage: 1 DF, 1 DF, 1 DF
     Dates: start: 20080404, end: 20100621
  2. IMPLANON [Suspect]
     Indication: CONTRACEPTION
     Dosage: 1 DF, 1 DF, 1 DF
     Dates: start: 20050411
  3. IMPLANON [Suspect]
     Indication: CONTRACEPTION
     Dosage: 1 DF, 1 DF, 1 DF
     Dates: start: 20020416

REACTIONS (1)
  - BREAST CANCER [None]
